FAERS Safety Report 23800403 (Version 1)
Quarter: 2024Q2

REPORT INFORMATION
  Report Type: Report from Study
  Country: US (occurrence: US)
  Receive Date: 20240430
  Receipt Date: 20240430
  Transmission Date: 20240716
  Serious: Yes (Death)
  Sender: FDA-Public Use
  Company Number: US-TAIHOP-2023-010439

PATIENT
  Age: 70 Year
  Sex: Female

DRUGS (1)
  1. LONSURF [Suspect]
     Active Substance: TIPIRACIL HYDROCHLORIDE\TRIFLURIDINE
     Indication: Rectal cancer
     Dosage: CYCLE 1 STARTED 13/NOV/2023; CURRENT CYCLE UNKNOWN
     Route: 048
     Dates: start: 20231113, end: 202403

REACTIONS (2)
  - Death [Fatal]
  - Blood bilirubin increased [Unknown]

NARRATIVE: CASE EVENT DATE: 20240317
